FAERS Safety Report 6706250-3 (Version None)
Quarter: 2010Q2

REPORT INFORMATION
  Report Type: 
  Country: None (occurrence: None)
  Receive Date: 20100503
  Receipt Date: 20100423
  Transmission Date: 20101027
  Serious: Yes (Hospitalization, Disabling)
  Sender: FDA-Public Use
  Company Number: JP-PFIZER INC-2010018893

PATIENT
  Age: 75 Year
  Sex: Female
  Weight: 57 kg

DRUGS (7)
  1. CELECOX [Suspect]
     Indication: SPINAL OSTEOARTHRITIS
     Dosage: 100 MG, 2X/DAY
     Route: 048
     Dates: start: 20080101, end: 20100114
  2. AMARYL [Concomitant]
     Indication: DIABETES MELLITUS
     Dosage: UNK
     Dates: start: 20080101
  3. MUCOSTA [Concomitant]
     Indication: GASTRITIS
     Dosage: UNK
     Dates: start: 20080101
  4. SENNARIDE [Concomitant]
     Indication: CONSTIPATION
     Dosage: UNK
     Dates: start: 20080101
  5. EBRANTIL [Concomitant]
     Dosage: UNK
     Dates: start: 20100115
  6. UBRETID [Concomitant]
     Dosage: UNK
     Dates: start: 20100115, end: 20100130
  7. BESACOLIN [Concomitant]
     Dosage: UNK
     Dates: start: 20100115, end: 20100130

REACTIONS (3)
  - HAEMATURIA [None]
  - NEUROGENIC BLADDER [None]
  - URINARY RETENTION [None]
